FAERS Safety Report 13666428 (Version 1)
Quarter: 2017Q2

REPORT INFORMATION
  Report Type: Spontaneous
  Country: US (occurrence: US)
  Receive Date: 20170619
  Receipt Date: 20170619
  Transmission Date: 20170830
  Serious: No
  Sender: FDA-Public Use
  Company Number: US-ROCHE-1354397

PATIENT
  Sex: Female

DRUGS (4)
  1. XELODA [Suspect]
     Active Substance: CAPECITABINE
     Indication: COLON CANCER
     Dosage: 14 DAYS ON, 7 DAYS OFF
     Route: 048
     Dates: start: 20130725
  2. SPIRIVA [Concomitant]
     Active Substance: TIOTROPIUM BROMIDE MONOHYDRATE
  3. SIMVASTATIN. [Concomitant]
     Active Substance: SIMVASTATIN
  4. VITAMIN B6 [Concomitant]
     Active Substance: PYRIDOXINE HYDROCHLORIDE

REACTIONS (4)
  - Dry mouth [Unknown]
  - Erythema [Unknown]
  - Skin fissures [Unknown]
  - Oral discomfort [Unknown]
